FAERS Safety Report 10950435 (Version 1)
Quarter: 2015Q1

REPORT INFORMATION
  Report Type: Spontaneous
  Country: US (occurrence: None)
  Receive Date: 20150323
  Receipt Date: 20150323
  Transmission Date: 20150721
  Serious: Yes (Hospitalization, Disabling)
  Sender: FDA-Public Use
  Company Number: None

PATIENT
  Age: 65 Year
  Sex: Female
  Weight: 58.97 kg

DRUGS (6)
  1. LEVOFLOXACIN 500 MG LUPIN [Suspect]
     Active Substance: LEVOFLOXACIN
     Indication: INFECTION PROPHYLAXIS
     Route: 048
     Dates: start: 20150313, end: 20150319
  2. L-LYSINE [Concomitant]
     Active Substance: LYSINE
  3. CALCIUM [Concomitant]
     Active Substance: CALCIUM
  4. VITAMIN B12 [Concomitant]
     Active Substance: CYANOCOBALAMIN
  5. VITAMIN D [Concomitant]
     Active Substance: CHOLECALCIFEROL
  6. LETRAZOLE (FEMARA) 2.5 MG GENERIC FEMARA [Concomitant]
     Active Substance: LETROZOLE

REACTIONS (16)
  - Dizziness [None]
  - Fatigue [None]
  - Nervousness [None]
  - Restlessness [None]
  - Nausea [None]
  - Dyspnoea [None]
  - Skin burning sensation [None]
  - Gait disturbance [None]
  - Headache [None]
  - Drug ineffective [None]
  - Muscle spasms [None]
  - Anxiety [None]
  - Incision site complication [None]
  - Initial insomnia [None]
  - Incision site erythema [None]
  - Arthralgia [None]

NARRATIVE: CASE EVENT DATE: 20150313
